FAERS Safety Report 20491852 (Version 1)
Quarter: 2022Q1

REPORT INFORMATION
  Report Type: Report from Study
  Country: PA (occurrence: PA)
  Receive Date: 20220218
  Receipt Date: 20220218
  Transmission Date: 20220423
  Serious: Yes (Hospitalization)
  Sender: FDA-Public Use
  Company Number: PA-NOVARTISPH-NVSC2021PA107385

PATIENT
  Sex: Female

DRUGS (2)
  1. ELTROMBOPAG OLAMINE [Suspect]
     Active Substance: ELTROMBOPAG OLAMINE
     Indication: Immune thrombocytopenia
     Dosage: UNK
     Route: 065
  2. PREDNISONE [Concomitant]
     Active Substance: PREDNISONE
     Indication: Immunosuppressant drug therapy
     Dosage: 50 MG
     Route: 065

REACTIONS (14)
  - Platelet count decreased [Unknown]
  - COVID-19 [Unknown]
  - Pneumonia [Unknown]
  - Oxygen saturation decreased [Unknown]
  - Diabetes mellitus [Unknown]
  - Blood glucose abnormal [Unknown]
  - Platelet count increased [Unknown]
  - Weight decreased [Unknown]
  - Drug ineffective [Unknown]
  - Liver disorder [Unknown]
  - Pruritus [Unknown]
  - Contusion [Unknown]
  - Skin discolouration [Unknown]
  - Product availability issue [Unknown]
